FAERS Safety Report 20278471 (Version 1)
Quarter: 2022Q1

REPORT INFORMATION
  Report Type: Spontaneous
  Country: US (occurrence: US)
  Receive Date: 20220103
  Receipt Date: 20220103
  Transmission Date: 20220424
  Serious: No
  Sender: FDA-Public Use
  Company Number: US-TEVA-2021-US-1991334

PATIENT
  Sex: Female

DRUGS (1)
  1. ALBUTEROL SULFATE [Suspect]
     Active Substance: ALBUTEROL SULFATE
     Dosage: INHALATION - AEROSOL
     Route: 065
     Dates: start: 2020

REACTIONS (5)
  - Cough [Unknown]
  - Retching [Unknown]
  - Device occlusion [Unknown]
  - Device malfunction [Unknown]
  - Product residue present [Unknown]
